FAERS Safety Report 15975923 (Version 2)
Quarter: 2019Q1

REPORT INFORMATION
  Report Type: Report from Study
  Country: ZA (occurrence: ZA)
  Receive Date: 20190218
  Receipt Date: 20190222
  Transmission Date: 20190418
  Serious: Yes (Death)
  Sender: FDA-Public Use
  Company Number: PHHY2019ZA037186

PATIENT
  Sex: Male

DRUGS (2)
  1. NEXMEZOLE [Suspect]
     Active Substance: ESOMEPRAZOLE
     Indication: ULCER
     Dosage: 40 MG, UNK
     Route: 048
  2. ALLOPURINOL SANDOZ [Suspect]
     Active Substance: ALLOPURINOL
     Indication: GOUT
     Dosage: 300 MG, UNK
     Route: 065

REACTIONS (1)
  - Neoplasm malignant [Fatal]
